FAERS Safety Report 14124964 (Version 3)
Quarter: 2017Q4

REPORT INFORMATION
  Report Type: Report from Study
  Country: FR (occurrence: FR)
  Receive Date: 20171025
  Receipt Date: 20171206
  Transmission Date: 20180321
  Serious: Yes (Hospitalization)
  Sender: FDA-Public Use
  Company Number: FR-B.I. PHARMACEUTICALS,INC./RIDGEFIELD-2017-BI-056560

PATIENT
  Age: 43 Year
  Sex: Male
  Weight: 62 kg

DRUGS (11)
  1. ESOMEPRAZOLE [Concomitant]
     Active Substance: ESOMEPRAZOLE
     Indication: SYSTEMIC SCLERODERMA
     Route: 048
  2. SPECIAFOLDINE [Concomitant]
     Active Substance: FOLIC ACID
     Indication: SYSTEMIC SCLERODERMA
     Route: 048
     Dates: start: 2013
  3. BIBF 1120 [Suspect]
     Active Substance: NINTEDANIB
     Indication: SYSTEMIC SCLERODERMA
     Route: 048
     Dates: start: 20160530
  4. BIBF 1120 [Suspect]
     Active Substance: NINTEDANIB
     Indication: INTERSTITIAL LUNG DISEASE
  5. LOXEN L P [Concomitant]
     Active Substance: NICARDIPINE HYDROCHLORIDE
     Indication: SYSTEMIC SCLERODERMA
     Route: 048
     Dates: start: 2013
  6. KETOPROFEN. [Concomitant]
     Active Substance: KETOPROFEN
     Indication: SYSTEMIC SCLERODERMA
     Route: 048
     Dates: start: 20160801
  7. MOTILIUM [Concomitant]
     Active Substance: DOMPERIDONE
     Indication: SYSTEMIC SCLERODERMA
     Route: 048
     Dates: start: 2014
  8. UVEDOSE [Concomitant]
     Active Substance: CHOLECALCIFEROL
     Indication: SYSTEMIC SCLERODERMA
     Route: 058
  9. CORTANCYL [Concomitant]
     Active Substance: PREDNISONE
     Indication: SYSTEMIC SCLERODERMA
     Route: 048
     Dates: start: 20140624
  10. INEXIUM [Concomitant]
     Active Substance: ESOMEPRAZOLE
     Indication: SYSTEMIC SCLERODERMA
     Route: 048
  11. IMETH [Concomitant]
     Active Substance: METHOTREXATE SODIUM
     Indication: SYSTEMIC SCLERODERMA
     Route: 048
     Dates: start: 2013

REACTIONS (3)
  - Systemic scleroderma [Recovered/Resolved]
  - Dyspnoea [Recovered/Resolved]
  - Interstitial lung disease [Recovered/Resolved]

NARRATIVE: CASE EVENT DATE: 201707
